FAERS Safety Report 8289087-6 (Version None)
Quarter: 2012Q2

REPORT INFORMATION
  Report Type: 
  Country: None (occurrence: None)
  Receive Date: 20120417
  Receipt Date: 20120406
  Transmission Date: 20120825
  Serious: Yes (Other)
  Sender: FDA-Public Use
  Company Number: JP-JNJFOC-20120402372

PATIENT

DRUGS (1)
  1. DOXORUBICIN HCL [Suspect]
     Indication: OVARIAN EPITHELIAL CANCER
     Route: 042

REACTIONS (11)
  - MUCOSAL INFLAMMATION [None]
  - ASPARTATE AMINOTRANSFERASE ABNORMAL [None]
  - ALANINE AMINOTRANSFERASE ABNORMAL [None]
  - BLOOD CREATININE ABNORMAL [None]
  - PALMAR-PLANTAR ERYTHRODYSAESTHESIA SYNDROME [None]
  - WHITE BLOOD CELL DISORDER [None]
  - PLATELET COUNT ABNORMAL [None]
  - NAUSEA [None]
  - NEUTROPHIL COUNT ABNORMAL [None]
  - HAEMOGLOBIN ABNORMAL [None]
  - DIARRHOEA [None]
